FAERS Safety Report 9097528 (Version 1)
Quarter: 2013Q1

REPORT INFORMATION
  Report Type: Spontaneous
  Country: GB (occurrence: GB)
  Receive Date: 20130212
  Receipt Date: 20130212
  Transmission Date: 20140127
  Serious: Yes (Death)
  Sender: FDA-Public Use
  Company Number: GB-BAXTER-2013BAX003933

PATIENT
  Age: 73 Year
  Sex: Male
  Weight: 47.9 kg

DRUGS (1)
  1. DIANEAL PD4 GLUCOSE 1.36% W/V / 13.6 MG/ML [Suspect]
     Indication: PERITONEAL DIALYSIS
     Dosage: 3 X 2 L BAGS DAILY
     Route: 033
     Dates: start: 20121030

REACTIONS (1)
  - Death [Fatal]
